FAERS Safety Report 19096796 (Version 1)
Quarter: 2021Q2

REPORT INFORMATION
  Report Type: Spontaneous
  Country: US (occurrence: US)
  Receive Date: 20210405
  Receipt Date: 20210405
  Transmission Date: 20210717
  Serious: Yes (Other)
  Sender: FDA-Public Use
  Company Number: None

PATIENT
  Age: 16 Year
  Sex: Male
  Weight: 60.75 kg

DRUGS (1)
  1. METHYLPHENIDATE 54MG ER OSM TABLET [Suspect]
     Active Substance: METHYLPHENIDATE
     Indication: ATTENTION DEFICIT HYPERACTIVITY DISORDER
     Dosage: ?          QUANTITY:1 TABLET(S);?
     Route: 048
     Dates: start: 20210317, end: 20210326

REACTIONS (3)
  - Insomnia [None]
  - Educational problem [None]
  - Hyperhidrosis [None]

NARRATIVE: CASE EVENT DATE: 20210317
